FAERS Safety Report 15672707 (Version 1)
Quarter: 2018Q4

REPORT INFORMATION
  Report Type: Report from Study
  Country: US (occurrence: US)
  Receive Date: 20181129
  Receipt Date: 20181129
  Transmission Date: 20190205
  Serious: No
  Sender: FDA-Public Use
  Company Number: US-TESARO, INC-US-2018TSO03960

PATIENT
  Age: 76 Year
  Sex: Female

DRUGS (2)
  1. ZEJULA [Suspect]
     Active Substance: NIRAPARIB
     Indication: OVARIAN CANCER
     Dosage: 200 MG, QD
     Route: 048
     Dates: start: 20180723, end: 20180820
  2. ZEJULA [Suspect]
     Active Substance: NIRAPARIB
     Dosage: 100 MG, QD
     Route: 048
     Dates: start: 20180903

REACTIONS (10)
  - Drug ineffective [Unknown]
  - Intentional underdose [Unknown]
  - Carbohydrate antigen 125 increased [Unknown]
  - Constipation [Recovering/Resolving]
  - Dizziness [Recovered/Resolved]
  - Haemoglobin decreased [Not Recovered/Not Resolved]
  - Blood pressure abnormal [Unknown]
  - Platelet count decreased [Recovered/Resolved]
  - Blood count abnormal [Unknown]
  - Fatigue [Recovering/Resolving]

NARRATIVE: CASE EVENT DATE: 20180723
